FAERS Safety Report 25612990 (Version 1)
Quarter: 2025Q3

REPORT INFORMATION
  Report Type: Spontaneous
  Country: US (occurrence: None)
  Receive Date: 20250726
  Receipt Date: 20250726
  Transmission Date: 20251021
  Serious: Yes (Disabling, Other)
  Sender: FDA-CTU
  Company Number: None

PATIENT
  Age: 35 Year
  Sex: Male
  Weight: 94.5 kg

DRUGS (2)
  1. EFFEXOR [Suspect]
     Active Substance: VENLAFAXINE HYDROCHLORIDE
     Indication: Generalised anxiety disorder
  2. HYDROXYZINE HYDROCHLORIDE [Concomitant]
     Active Substance: HYDROXYZINE HYDROCHLORIDE

REACTIONS (24)
  - Agoraphobia [None]
  - Sexual dysfunction [None]
  - Irritable bowel syndrome [None]
  - Withdrawal syndrome [None]
  - Nausea [None]
  - Dizziness [None]
  - Brain fog [None]
  - Cognitive disorder [None]
  - Depression [None]
  - Suicidal ideation [None]
  - Tremor [None]
  - Seizure [None]
  - Hot flush [None]
  - Cold sweat [None]
  - Nightmare [None]
  - Insomnia [None]
  - Restlessness [None]
  - Agitation [None]
  - Irritability [None]
  - Impaired work ability [None]
  - Nervous system disorder [None]
  - Thinking abnormal [None]
  - Quality of life decreased [None]
  - Antisocial personality disorder [None]

NARRATIVE: CASE EVENT DATE: 20210415
